FAERS Safety Report 17049346 (Version 1)
Quarter: 2019Q4

REPORT INFORMATION
  Report Type: Spontaneous
  Country: US (occurrence: US)
  Receive Date: 20191119
  Receipt Date: 20191119
  Transmission Date: 20200122
  Serious: Yes (Other)
  Sender: FDA-Public Use
  Company Number: None

PATIENT
  Age: 70 Year
  Sex: Female

DRUGS (10)
  1. HALOBETASOL CRE [Concomitant]
  2. METHENAM HIP TAB [Concomitant]
  3. TACROLIMUS. [Suspect]
     Active Substance: TACROLIMUS
     Indication: RENAL TRANSPLANT
     Route: 048
     Dates: start: 20170627, end: 20191118
  4. METHYLPRED [Concomitant]
     Active Substance: METHYLPREDNISOLONE
  5. LISINOPRIL. [Concomitant]
     Active Substance: LISINOPRIL
  6. METOPROLOL. [Concomitant]
     Active Substance: METOPROLOL
  7. DOXEPIN HCL [Concomitant]
     Active Substance: DOXEPIN HYDROCHLORIDE
  8. LORAZEPAM. [Concomitant]
     Active Substance: LORAZEPAM
  9. CLONIDINE. [Concomitant]
     Active Substance: CLONIDINE
  10. GENTAMICIN. [Concomitant]
     Active Substance: GENTAMICIN

REACTIONS (2)
  - Renal transplant failure [None]
  - Dialysis [None]

NARRATIVE: CASE EVENT DATE: 20191118
